FAERS Safety Report 15020255 (Version 1)
Quarter: 2018Q2

REPORT INFORMATION
  Report Type: Spontaneous
  Country: FR (occurrence: FR)
  Receive Date: 20180618
  Receipt Date: 20180618
  Transmission Date: 20180711
  Serious: Yes (Other)
  Sender: FDA-Public Use
  Company Number: FR-MERCK KGAA-2049540

PATIENT
  Age: 55 Year
  Sex: Female

DRUGS (2)
  1. NOVOTHYROX [Suspect]
     Active Substance: LEVOTHYROXINE SODIUM
     Indication: HYPOTHYROIDISM
     Dates: start: 2017
  2. NOVOTHYROX [Suspect]
     Active Substance: LEVOTHYROXINE SODIUM
     Indication: AUTOIMMUNE THYROIDITIS
     Dates: start: 2017

REACTIONS (17)
  - Gait disturbance [None]
  - Alopecia [None]
  - Muscle spasms [None]
  - Headache [None]
  - Insomnia [None]
  - Palpitations [None]
  - Depressed mood [None]
  - Blood thyroid stimulating hormone increased [None]
  - Vertigo [None]
  - Hypothyroidism [None]
  - Blood thyroid stimulating hormone abnormal [None]
  - Nausea [None]
  - Bradycardia [None]
  - Hyperhidrosis [None]
  - Tachycardia [None]
  - Weight decreased [None]
  - Cardiac disorder [None]

NARRATIVE: CASE EVENT DATE: 2017
